FAERS Safety Report 6506274-5 (Version None)
Quarter: 2009Q4

REPORT INFORMATION
  Report Type: 
  Country: None (occurrence: None)
  Receive Date: 20091216
  Receipt Date: 20091204
  Transmission Date: 20100525
  Serious: Yes (Other)
  Sender: FDA-Public Use
  Company Number: 2009S1000426-001

PATIENT
  Age: 66 Year
  Sex: Male

DRUGS (11)
  1. PITAVASTATIN CALCIUM [Suspect]
     Dosage: 1MG PO
     Route: 048
     Dates: end: 20091125
  2. AMLODIPINE BESYLATE [Concomitant]
  3. ATENOLOL [Concomitant]
  4. ACETYLSALICYLIC ACID [Concomitant]
  5. INDAPAMIDE [Concomitant]
  6. TEPRENONE [Concomitant]
  7. OLMESARTAN MEDOXOMIL [Concomitant]
  8. METFORMIN HCL [Concomitant]
  9. INSULIN GLARGINE [Concomitant]
  10. INSULIN LISPRO PROTAMINE SUSPENSION [Concomitant]
  11. METHYLDOPA [Concomitant]

REACTIONS (11)
  - ALANINE AMINOTRANSFERASE INCREASED [None]
  - ASPARTATE AMINOTRANSFERASE INCREASED [None]
  - BLOOD CREATINE PHOSPHOKINASE INCREASED [None]
  - BLOOD GLUCOSE INCREASED [None]
  - BLOOD LACTATE DEHYDROGENASE INCREASED [None]
  - BLOOD POTASSIUM INCREASED [None]
  - GAMMA-GLUTAMYLTRANSFERASE INCREASED [None]
  - GLYCOSYLATED HAEMOGLOBIN INCREASED [None]
  - HEPATIC FUNCTION ABNORMAL [None]
  - HYPOAESTHESIA [None]
  - RENAL IMPAIRMENT [None]
